FAERS Safety Report 5220104-3 (Version None)
Quarter: 2007Q1

REPORT INFORMATION
  Report Type: 
  Country: None (occurrence: None)
  Receive Date: 20070125
  Receipt Date: 20070125
  Transmission Date: 20070707
  Serious: No
  Sender: FDA-Public Use
  Company Number: None

PATIENT

DRUGS (1)
  1. AUGMENTIN '400' [Suspect]
     Indication: ANTI-INFECTIVE THERAPY
     Dosage: LESS THAN 3.5 ML FOR 10 DAYS  TWICE  PO
     Route: 048

REACTIONS (1)
  - MEDICATION ERROR [None]
